FAERS Safety Report 14756062 (Version 2)
Quarter: 2025Q2

REPORT INFORMATION
  Report Type: Spontaneous
  Country: GB (occurrence: GB)
  Receive Date: 20180413
  Receipt Date: 20250618
  Transmission Date: 20250716
  Serious: Yes (Other)
  Sender: ALKEM
  Company Number: None

PATIENT
  Age: 75 Year
  Sex: Female

DRUGS (17)
  1. LANSOPRAZOLE [Suspect]
     Active Substance: LANSOPRAZOLE
     Indication: Product used for unknown indication
     Dosage: 1 UNK, ONCE IN 2 WEEKS
     Route: 065
  2. QUETIAPINE FUMARATE [Suspect]
     Active Substance: QUETIAPINE FUMARATE
     Indication: Product used for unknown indication
     Dosage: 1 UNK, ONCE IN 2 WEEKS
     Route: 065
  3. CITALOPRAM [Suspect]
     Active Substance: CITALOPRAM
     Indication: Product used for unknown indication
     Dosage: 1 UNK, ONCE IN 2 WEEKS
     Route: 065
  4. DOMPERIDONE [Suspect]
     Active Substance: DOMPERIDONE
     Indication: Product used for unknown indication
     Dosage: 1 UNK, ONCE IN 2 WEEKS (INJECTION)
     Route: 065
  5. DOMPERIDONE [Suspect]
     Active Substance: DOMPERIDONE
     Route: 065
  6. LACTULOSE [Suspect]
     Active Substance: LACTULOSE
     Indication: Product used for unknown indication
     Route: 065
  7. BISOPROLOL [Suspect]
     Active Substance: BISOPROLOL
     Indication: Product used for unknown indication
     Route: 065
  8. CEREZYME [Suspect]
     Active Substance: IMIGLUCERASE
     Indication: Product used for unknown indication
     Route: 042
  9. CEREZYME [Suspect]
     Active Substance: IMIGLUCERASE
     Dosage: 800 DOSAGE FORM, ONCE IN 2 WEEKS, (QOW) (POWDER FOR SOLUTION FOR INFUSION)
     Route: 042
  10. CEREZYME [Suspect]
     Active Substance: IMIGLUCERASE
     Dosage: 800 INTERNATIONAL UNIT, ONCE IN 2 WEEKS, (QOW) (POWDER FOR SOLUTION FOR INFUSION)
     Route: 042
  11. CEREZYME [Suspect]
     Active Substance: IMIGLUCERASE
     Dosage: 800 INTERNATIONAL UNIT, ONCE IN 2 WEEKS
     Route: 042
  12. BENSERAZIDE HYDROCHLORIDE\LEVODOPA [Suspect]
     Active Substance: BENSERAZIDE HYDROCHLORIDE\LEVODOPA
     Indication: Product used for unknown indication
     Dosage: 1 UNK, ONCE IN 2 WEEKS
     Route: 065
  13. CYCLIZINE [Suspect]
     Active Substance: CYCLIZINE
     Indication: Product used for unknown indication
     Dosage: 1 UNK, ONCE IN 2 WEEKS
     Route: 065
  14. RIVASTIGMINE [Suspect]
     Active Substance: RIVASTIGMINE
     Indication: Product used for unknown indication
     Dosage: 1 UNK, ONCE IN 2 WEEKS
     Route: 065
  15. ROPINIROLE [Suspect]
     Active Substance: ROPINIROLE
     Indication: Product used for unknown indication
     Dosage: 1 UNK, ONCE IN 2 WEEKS
     Route: 065
  16. SENNA [Suspect]
     Active Substance: SENNOSIDES
     Indication: Product used for unknown indication
     Route: 065
  17. SENNA [Suspect]
     Active Substance: SENNOSIDES
     Dosage: 1 UNK, ONCE IN 2 WEEKS
     Route: 065

REACTIONS (3)
  - Parkinson^s disease [Unknown]
  - Dizziness [Unknown]
  - Dizziness [Unknown]
